FAERS Safety Report 16711003 (Version 2)
Quarter: 2019Q3

REPORT INFORMATION
  Report Type: Report from Study
  Country: IT (occurrence: IT)
  Receive Date: 20190816
  Receipt Date: 20190822
  Transmission Date: 20191004
  Serious: Yes (Other)
  Sender: FDA-Public Use
  Company Number: IT-PFIZER INC-2019344734

PATIENT
  Age: 67 Year
  Sex: Female

DRUGS (2)
  1. EPIRUBICIN HCL [Suspect]
     Active Substance: EPIRUBICIN HYDROCHLORIDE
     Indication: GASTROINTESTINAL CARCINOMA
     Dosage: 70 MG, CYCLIC
     Route: 041
     Dates: start: 20190412
  2. AMLODIPINE [Concomitant]
     Active Substance: AMLODIPINE BESYLATE
     Indication: HYPERTENSION
     Dosage: 5 MG, UNK
     Route: 048
     Dates: start: 20050101

REACTIONS (5)
  - Nausea [Recovering/Resolving]
  - Asthenia [Recovering/Resolving]
  - Nocturia [Recovering/Resolving]
  - Abdominal pain [Recovering/Resolving]
  - Oedema [Recovering/Resolving]

NARRATIVE: CASE EVENT DATE: 20190426
